FAERS Safety Report 19060745 (Version 13)
Quarter: 2023Q2

REPORT INFORMATION
  Report Type: Report from Study
  Country: CA (occurrence: CA)
  Receive Date: 20210326
  Receipt Date: 20230613
  Transmission Date: 20230722
  Serious: Yes (Hospitalization, Other)
  Sender: FDA-Public Use
  Company Number: CA-BAUSCH-BL-2021-003773

PATIENT
  Age: 61 Year
  Sex: Male
  Weight: 79.45 kg

DRUGS (6)
  1. SILIQ [Interacting]
     Active Substance: BRODALUMAB
     Indication: Psoriasis
     Dosage: 210 MG/ 1.5 ML, WEEK 0, 1, 2
     Route: 058
     Dates: start: 20210119, end: 20210202
  2. SILIQ [Interacting]
     Active Substance: BRODALUMAB
     Dosage: 210 MG/ 1.5 ML, Q2WEEKS
     Route: 058
     Dates: start: 202102
  3. SILIQ [Interacting]
     Active Substance: BRODALUMAB
     Dosage: 210 MG/ 1.5 ML, Q2WEEKS
     Route: 058
     Dates: end: 20230504
  4. VENTOLIN [Concomitant]
     Active Substance: ALBUTEROL SULFATE
     Indication: Product used for unknown indication
  5. CLOBETASOL PROPION [Concomitant]
     Indication: Product used for unknown indication
  6. SYMBICORT [Concomitant]
     Active Substance: BUDESONIDE\FORMOTEROL FUMARATE DIHYDRATE
     Indication: Product used for unknown indication

REACTIONS (25)
  - Laparoscopic surgery [Unknown]
  - Gastrointestinal surgery [Unknown]
  - Respiratory arrest [Not Recovered/Not Resolved]
  - Colonoscopy [Not Recovered/Not Resolved]
  - Emphysema [Not Recovered/Not Resolved]
  - Gastric ulcer [Not Recovered/Not Resolved]
  - Hernia hiatus repair [Not Recovered/Not Resolved]
  - Haemorrhage urinary tract [Recovered/Resolved]
  - Oesophageal infection [Recovered/Resolved]
  - Oesophageal stenosis [Not Recovered/Not Resolved]
  - Psoriasis [Not Recovered/Not Resolved]
  - Disease recurrence [Not Recovered/Not Resolved]
  - Hernia pain [Not Recovered/Not Resolved]
  - Abdominal pain upper [Not Recovered/Not Resolved]
  - Dyspnoea [Not Recovered/Not Resolved]
  - Inflammation [Not Recovered/Not Resolved]
  - Sleep apnoea syndrome [Not Recovered/Not Resolved]
  - Drug interaction [Unknown]
  - Oxygen saturation increased [Not Recovered/Not Resolved]
  - Chronic obstructive pulmonary disease [Not Recovered/Not Resolved]
  - Illness [Not Recovered/Not Resolved]
  - Hypersensitivity [Not Recovered/Not Resolved]
  - Patient dissatisfaction with treatment [Unknown]
  - Product dose omission issue [Unknown]
  - Therapy cessation [Unknown]

NARRATIVE: CASE EVENT DATE: 20210101
